FAERS Safety Report 12162003 (Version 1)
Quarter: 2016Q1

REPORT INFORMATION
  Report Type: Spontaneous
  Country: US (occurrence: None)
  Receive Date: 20160308
  Receipt Date: 20160308
  Transmission Date: 20160526
  Serious: Yes (Hospitalization)
  Sender: FDA-Public Use
  Company Number: None

PATIENT
  Age: 81 Year
  Sex: Female
  Weight: 105.1 kg

DRUGS (9)
  1. ANCEF [Concomitant]
     Active Substance: CEFAZOLIN SODIUM
  2. APAP [Concomitant]
     Active Substance: ACETAMINOPHEN
  3. LIDODERM [Concomitant]
     Active Substance: LIDOCAINE
  4. CARDIZEM CD [Concomitant]
     Active Substance: DILTIAZEM HYDROCHLORIDE
  5. XALATAN [Concomitant]
     Active Substance: LATANOPROST
  6. ULTRAM [Suspect]
     Active Substance: TRAMADOL HYDROCHLORIDE
     Indication: ARTHRALGIA
     Route: 048
  7. SENNA [Concomitant]
     Active Substance: SENNA LEAF\SENNOSIDES\SENNOSIDES A AND B
  8. LOPRESSOR [Concomitant]
     Active Substance: METOPROLOL TARTRATE
  9. COMADIN [Concomitant]
     Active Substance: CLOTRIMAZOLE

REACTIONS (4)
  - Mental status changes [None]
  - Road traffic accident [None]
  - Depressed level of consciousness [None]
  - Somnolence [None]

NARRATIVE: CASE EVENT DATE: 20150717
